FAERS Safety Report 18855029 (Version 1)
Quarter: 2021Q1

REPORT INFORMATION
  Report Type: Spontaneous
  Country: US (occurrence: US)
  Receive Date: 20210205
  Receipt Date: 20210205
  Transmission Date: 20210420
  Serious: Yes (Death)
  Sender: FDA-Public Use
  Company Number: US-PFIZER INC-2020438878

PATIENT
  Age: 57 Year
  Sex: Female

DRUGS (2)
  1. BESPONSA [Suspect]
     Active Substance: INOTUZUMAB OZOGAMICIN
     Dosage: 0.8 MG, CYCLIC (EVERY 21 DAYS)
  2. BESPONSA [Suspect]
     Active Substance: INOTUZUMAB OZOGAMICIN
     Dosage: 1 MG

REACTIONS (1)
  - Death [Fatal]
